FAERS Safety Report 6839853-6 (Version None)
Quarter: 2010Q3

REPORT INFORMATION
  Report Type: 
  Country: None (occurrence: None)
  Receive Date: 20100709
  Receipt Date: 20100622
  Transmission Date: 20110219
  Serious: Yes (Hospitalization)
  Sender: FDA-Public Use
  Company Number: FKO201000252

PATIENT
  Age: 59 Year
  Sex: Female

DRUGS (5)
  1. IRINOTECAN HCL [Suspect]
     Indication: PRODUCT USED FOR UNKNOWN INDICATION
     Dosage: (142.4 MG)
     Dates: start: 20091229, end: 20091229
  2. FLUOROURACIL [Suspect]
     Indication: PRODUCT USED FOR UNKNOWN INDICATION
     Dosage: (3557 MG)
     Dates: start: 20091229, end: 20091229
  3. AVASTIN [Concomitant]
  4. ATENOLOL [Concomitant]
  5. CALCIUM LEVOFOLINATE (CALCIUM LEVOFOLINATE) (CALCIUM LEVOFOLINATE) [Concomitant]

REACTIONS (1)
  - ANGINA PECTORIS [None]
